FAERS Safety Report 4372601-0 (Version None)
Quarter: 2004Q2

REPORT INFORMATION
  Report Type: 
  Country: None (occurrence: None)
  Receive Date: 20040526
  Receipt Date: 20040511
  Transmission Date: 20050107
  Serious: Yes (Hospitalization)
  Sender: FDA-Public Use
  Company Number: 2004AP01196

PATIENT
  Age: 75 Year
  Sex: Male

DRUGS (3)
  1. IRESSA [Suspect]
     Indication: NON-SMALL CELL LUNG CANCER
     Dosage: 250 MG DAILY PO
     Route: 048
     Dates: start: 20031020, end: 20031206
  2. PURSENNID [Concomitant]
  3. RADIATION THERAPY [Concomitant]

REACTIONS (3)
  - DIARRHOEA [None]
  - MELAENA [None]
  - RASH [None]
